FAERS Safety Report 15272187 (Version 1)
Quarter: 2018Q3

REPORT INFORMATION
  Report Type: Report from Study
  Country: TW (occurrence: TW)
  Receive Date: 20180813
  Receipt Date: 20180813
  Transmission Date: 20181010
  Serious: Yes (Other)
  Sender: FDA-Public Use
  Company Number: PHHY2016TW187147

PATIENT
  Age: 76 Year
  Sex: Male

DRUGS (1)
  1. REVOLADE [Suspect]
     Active Substance: ELTROMBOPAG
     Indication: PRODUCT USED FOR UNKNOWN INDICATION
     Dosage: 1 DF, TIW
     Route: 065
     Dates: start: 20151223, end: 20160316

REACTIONS (2)
  - Off label use [Unknown]
  - Type IIa hyperlipidaemia [Unknown]

NARRATIVE: CASE EVENT DATE: 20151223
